FAERS Safety Report 23787786 (Version 3)
Quarter: 2024Q4

REPORT INFORMATION
  Report Type: Spontaneous
  Country: GB (occurrence: GB)
  Receive Date: 20240426
  Receipt Date: 20241106
  Transmission Date: 20250115
  Serious: Yes (Life-Threatening, Hospitalization, Disabling, Other)
  Sender: TEVA
  Company Number: None

PATIENT
  Age: 30 Year
  Sex: Male
  Weight: 73 kg

DRUGS (6)
  1. ESCITALOPRAM [Suspect]
     Active Substance: ESCITALOPRAM OXALATE
     Indication: Anxiety
     Route: 065
  2. NAPROXEN [Concomitant]
     Active Substance: NAPROXEN
     Route: 065
     Dates: start: 20240820, end: 20240903
  3. ACETAMINOPHEN\CODEINE PHOSPHATE [Concomitant]
     Active Substance: ACETAMINOPHEN\CODEINE PHOSPHATE
     Dosage: ONE TO TWO TABLETS TO BE TAKEN EVERY FOUR TO SI...
     Route: 065
     Dates: start: 20240820, end: 20240901
  4. TAMSULOSIN [Concomitant]
     Active Substance: TAMSULOSIN
     Indication: Prostatism
     Route: 065
     Dates: start: 20150801
  5. OFLOXACIN [Suspect]
     Active Substance: OFLOXACIN
     Indication: Ill-defined disorder
     Route: 065
     Dates: start: 20241025
  6. ZOPICLONE [Concomitant]
     Active Substance: ZOPICLONE
     Dosage: AT NIGHT
     Route: 065
     Dates: start: 20240809, end: 20240816

REACTIONS (7)
  - Withdrawal syndrome [Not Recovered/Not Resolved]
  - Nightmare [Unknown]
  - Anxiety disorder [Unknown]
  - Abnormal dreams [Not Recovered/Not Resolved]
  - Sleep terror [Recovered/Resolved]
  - Rapid eye movement sleep behaviour disorder [Unknown]
  - Electric shock sensation [Unknown]

NARRATIVE: CASE EVENT DATE: 20230328
